FAERS Safety Report 10237106 (Version 1)
Quarter: 2014Q1

REPORT INFORMATION
  Report Type: Spontaneous
  Country: US (occurrence: None)
  Receive Date: 20140306
  Receipt Date: 20140306
  Transmission Date: 20141002
  Serious: Yes (Other)
  Sender: FDA-Public Use
  Company Number: 163-21880-13081188

PATIENT
  Age: 73 Year
  Sex: Male
  Weight: 70.8 kg

DRUGS (3)
  1. REVLIMID [Suspect]
     Indication: PLASMA CELL MYELOMA
     Route: 048
     Dates: start: 200912
  2. COMPLETE MULTIVITAMINS (MULTIVITAMINS) (TABLETS) [Concomitant]
  3. VITAMIN D (ERGOCALCIFEROL) (TABLETS) [Concomitant]

REACTIONS (1)
  - Deep vein thrombosis [None]
